FAERS Safety Report 4547115-5 (Version None)
Quarter: 2005Q1

REPORT INFORMATION
  Report Type: 
  Country: None (occurrence: None)
  Receive Date: 20050105
  Receipt Date: 20041221
  Transmission Date: 20050727
  Serious: Yes (Other)
  Sender: FDA-Public Use
  Company Number: 200416157BCC

PATIENT
  Age: 41 Year
  Sex: Male
  Weight: 72.5755 kg

DRUGS (1)
  1. ALEVE [Suspect]
     Indication: PAIN
     Dosage: PRN, ORAL
     Route: 048
     Dates: end: 20041220

REACTIONS (3)
  - CHEST PAIN [None]
  - HYPOAESTHESIA [None]
  - TREMOR [None]
